FAERS Safety Report 9503303 (Version 1)
Quarter: 2013Q1

REPORT INFORMATION
  Report Type: Spontaneous
  Country: US (occurrence: None)
  Receive Date: 20130225
  Receipt Date: 20130225
  Transmission Date: 20140127
  Serious: Yes (Other)
  Sender: FDA-Public Use
  Company Number: 369198

PATIENT
  Age: 67 Year
  Sex: Female
  Weight: 156.5 kg

DRUGS (19)
  1. VICTOZA [Suspect]
     Indication: TYPE 2 DIABETES MELLITUS
     Route: 058
     Dates: start: 20120725, end: 20120822
  2. CYMBALTA (DULOXETINE HYDROCHLORIDE) [Concomitant]
  3. METOLAZONE (METOLAZONE) [Concomitant]
  4. PREDNISONE (PREDNISONE) [Concomitant]
  5. KLOR -CON (POTASSIUM CHLORIDE) [Concomitant]
  6. TOVIAZ (FESOTERODINE FUMARATE) [Concomitant]
  7. PROAIR HFA (SALBUTAMOL SULFATE) [Concomitant]
  8. SINGULAIR [Concomitant]
  9. GABAPENTIN (GABAPENTIN) [Concomitant]
  10. HYDROXYZINE (HYDROXYZINE) [Concomitant]
  11. BUMETANIDE (BUMETANIDE) [Concomitant]
  12. CLARITIN /00917501/ (LORATADINE) [Concomitant]
  13. TYLENOL EXTRA STRENGTH (PARACETAMOL) [Concomitant]
  14. DOXYCYCLINE HYCLATE (DOXYCYCLINE HYCLATE) [Concomitant]
  15. SIMVASTATIN (SIMVASTATIN) [Concomitant]
  16. FUROSEMIDE (FUROSEMIDE) [Concomitant]
  17. PRILOSEC / 00661201 / OMEPRAZOLE) [Concomitant]
  18. ATENOLOL (ATENOLOL) [Concomitant]
  19. ATIVAN (LORAZEPAM) [Concomitant]

REACTIONS (1)
  - Pancreatitis [None]
